FAERS Safety Report 13107441 (Version 8)
Quarter: 2019Q1

REPORT INFORMATION
  Report Type: Report from Study
  Country: US (occurrence: US)
  Receive Date: 20170112
  Receipt Date: 20190326
  Transmission Date: 20190417
  Serious: Yes (Death, Hospitalization, Other)
  Sender: FDA-Public Use
  Company Number: US-ROCHE-1876818

PATIENT

DRUGS (1)
  1. ALTEPLASE. [Suspect]
     Active Substance: ALTEPLASE
     Indication: CEREBRAL HAEMORRHAGE
     Dosage: INTRAVENTRICULAR CATHETER
     Route: 065

REACTIONS (10)
  - Cerebral ischaemia [Recovered/Resolved]
  - Respiratory failure [Unknown]
  - Pneumonia [Recovered/Resolved]
  - Atrial fibrillation [Recovered/Resolved]
  - Haemorrhagic diathesis [Fatal]
  - Infection [Unknown]
  - CNS ventriculitis [Recovered/Resolved]
  - Depressed level of consciousness [Recovered/Resolved]
  - Cerebral ischaemia [Recovered/Resolved]
  - Phlebitis infective [Recovered/Resolved]

NARRATIVE: CASE EVENT DATE: 20161218
